FAERS Safety Report 8976491 (Version 1)
Quarter: 2012Q4

REPORT INFORMATION
  Report Type: 
  Country: ES (occurrence: ES)
  Receive Date: 20121220
  Receipt Date: 20121220
  Transmission Date: 20130627
  Serious: Yes (Death, Hospitalization)
  Sender: FDA-Public Use
  Company Number: ES-ELI_LILLY_AND_COMPANY-ES201212003024

PATIENT
  Age: 88 Year
  Sex: Male

DRUGS (4)
  1. FORSTEO [Suspect]
     Indication: OSTEOPOROSIS
     Dosage: 20 ug, qd
     Route: 058
     Dates: start: 20120314, end: 20121122
  2. SINTROM [Concomitant]
     Indication: CARDIAC PACEMAKER INSERTION
     Route: 048
  3. DILUTOL [Concomitant]
     Indication: OEDEMA PERIPHERAL
     Route: 048
  4. DUODART [Concomitant]
     Route: 048

REACTIONS (2)
  - Pancytopenia [Fatal]
  - Urinary tract infection [Unknown]
